FAERS Safety Report 16372598 (Version 1)
Quarter: 2019Q2

REPORT INFORMATION
  Report Type: Spontaneous
  Country: US (occurrence: US)
  Receive Date: 20190424
  Receipt Date: 20190424
  Transmission Date: 20190711
  Serious: No
  Sender: FDA-Public Use
  Company Number: None

PATIENT
  Age: 71 Year
  Sex: Female

DRUGS (1)
  1. ENBREL [Suspect]
     Active Substance: ETANERCEPT
     Route: 058
     Dates: start: 20190402, end: 20190416

REACTIONS (5)
  - Lymphadenopathy [None]
  - Fatigue [None]
  - Acne [None]
  - Injection site rash [None]
  - Aphonia [None]

NARRATIVE: CASE EVENT DATE: 20190416
